FAERS Safety Report 4901308-3 (Version None)
Quarter: 2006Q1

REPORT INFORMATION
  Report Type: 
  Country: None (occurrence: None)
  Receive Date: 20060206
  Receipt Date: 20051128
  Transmission Date: 20060701
  Serious: Yes (Hospitalization)
  Sender: FDA-Public Use
  Company Number: FR-NOVOPROD-248965

PATIENT
  Age: 63 Year
  Sex: Female
  Weight: 88 kg

DRUGS (6)
  1. NOVOLOG MIX 70/30 [Suspect]
     Dosage: 122 IU, QD
     Route: 058
     Dates: start: 20050531
  2. METFORMIN [Suspect]
     Dosage: 1500 MG, QD
     Route: 048
     Dates: start: 20050531
  3. MEDIATENSYL [Concomitant]
     Dosage: 120 MG, QD
     Route: 048
     Dates: start: 20040101
  4. LEVOTHYROX [Concomitant]
     Dosage: 25 UG, QD
     Route: 048
     Dates: start: 20030401
  5. MOPRAL [Concomitant]
     Dosage: 20 MG, QD
     Route: 048
     Dates: start: 20050301
  6. TENORDATE [Concomitant]
     Dosage: 20 MG, QD
     Route: 048
     Dates: start: 20050201

REACTIONS (4)
  - BLOOD GLUCOSE INCREASED [None]
  - GLYCOSYLATED HAEMOGLOBIN INCREASED [None]
  - OEDEMA [None]
  - WEIGHT INCREASED [None]
